FAERS Safety Report 7234440-2 (Version None)
Quarter: 2011Q1

REPORT INFORMATION
  Report Type: 
  Country: None (occurrence: None)
  Receive Date: 20110119
  Receipt Date: 20110111
  Transmission Date: 20110831
  Serious: Yes (Other)
  Sender: FDA-Public Use
  Company Number: US-PURDUE-USA-2011-0062128

PATIENT
  Sex: Female

DRUGS (1)
  1. OXYCONTIN [Suspect]
     Indication: PRODUCT USED FOR UNKNOWN INDICATION
     Dosage: 240 MG, Q12H
     Route: 048

REACTIONS (6)
  - NEOPLASM MALIGNANT [None]
  - DYSURIA [None]
  - UNEVALUABLE EVENT [None]
  - RENAL FAILURE [None]
  - ALOPECIA [None]
  - CONSTIPATION [None]
